FAERS Safety Report 8119840-0 (Version None)
Quarter: 2012Q1

REPORT INFORMATION
  Report Type: 
  Country: None (occurrence: None)
  Receive Date: 20120206
  Receipt Date: 20120206
  Transmission Date: 20120608
  Serious: Yes (Life-Threatening, Other)
  Sender: FDA-Public Use
  Company Number: None

PATIENT
  Age: 69 Year
  Sex: Male
  Weight: 82.5547 kg

DRUGS (1)
  1. SPIRIVA RESPIMAT [Suspect]
     Dosage: 1 CAPSULE INH 2 DAILY ONCE INH
     Route: 055
     Dates: start: 20110901

REACTIONS (6)
  - HEART RATE DECREASED [None]
  - POLLAKIURIA [None]
  - FATIGUE [None]
  - HEART RATE IRREGULAR [None]
  - HEADACHE [None]
  - PRODUCTIVE COUGH [None]
